FAERS Safety Report 5808878-1 (Version None)
Quarter: 2008Q3

REPORT INFORMATION
  Report Type: 
  Country: None (occurrence: None)
  Receive Date: 20080714
  Receipt Date: 20080620
  Transmission Date: 20090109
  Serious: Yes (Disabling)
  Sender: FDA-Public Use
  Company Number: DE-ASTRAZENECA-2008PK00996

PATIENT
  Age: 887 Month
  Sex: Male
  Weight: 80 kg

DRUGS (3)
  1. ZOLADEX [Suspect]
     Indication: PROSTATE CANCER
     Dates: start: 20070801, end: 20071101
  2. TRINITON [Concomitant]
     Indication: HYPERTENSION
     Dosage: 1 TABLET BID
     Route: 048
  3. TICLOPIDIN [Concomitant]
     Indication: PLATELET AGGREGATION INHIBITION
     Dosage: 1 TABLET QD
     Route: 048

REACTIONS (3)
  - ASTHENIA [None]
  - HOT FLUSH [None]
  - SWEAT GLAND DISORDER [None]
